FAERS Safety Report 10193465 (Version 1)
Quarter: 2014Q2

REPORT INFORMATION
  Report Type: Spontaneous
  Country: US (occurrence: US)
  Receive Date: 20140524
  Receipt Date: 20140524
  Transmission Date: 20141212
  Serious: No
  Sender: FDA-Public Use
  Company Number: US-SA-2014SA004029

PATIENT
  Sex: Male

DRUGS (3)
  1. LANTUS [Suspect]
     Route: 065
  2. METFORMIN [Suspect]
     Route: 065
  3. HUMALOG [Suspect]
     Route: 065

REACTIONS (3)
  - Pain in extremity [Unknown]
  - Paraesthesia [Unknown]
  - Hypoaesthesia [Unknown]
